FAERS Safety Report 4678992-5 (Version None)
Quarter: 2005Q2

REPORT INFORMATION
  Report Type: 
  Country: None (occurrence: None)
  Receive Date: 20050531
  Receipt Date: 20050516
  Transmission Date: 20051028
  Serious: Yes (Hospitalization)
  Sender: FDA-Public Use
  Company Number: DSK-2004-05179

PATIENT
  Age: 28 Year
  Sex: Male

DRUGS (6)
  1. TARIVID OTIC SOLUTION [Suspect]
     Dosage: SOLUTION NOS AURICULAR (OTIC)
     Route: 001
     Dates: start: 20040111, end: 20040114
  2. CEFPODOXIME PROXETIL [Suspect]
     Dosage: FILM-COATED TABLETS PER ORAL
     Route: 048
     Dates: start: 20040113, end: 20040114
  3. CELESTONE [Concomitant]
  4. DOLIPRANE (PARACETAMOL) [Concomitant]
  5. DIANTALVIC (PARACETAMOL, DEXTROPROPOXYPHENE HYDROCHLORIDE) [Concomitant]
  6. TRAMADOL HCL [Concomitant]

REACTIONS (2)
  - SKIN TEST POSITIVE [None]
  - TOXIC SKIN ERUPTION [None]
